FAERS Safety Report 6128971-6 (Version None)
Quarter: 2009Q1

REPORT INFORMATION
  Report Type: 
  Country: None (occurrence: None)
  Receive Date: 20090324
  Receipt Date: 20090317
  Transmission Date: 20090719
  Serious: Yes (Other)
  Sender: FDA-Public Use
  Company Number: PHHY2009CA04326

PATIENT
  Sex: Female

DRUGS (6)
  1. ACLASTA [Suspect]
     Indication: OSTEOPOROSIS
     Dosage: 5 MG/100 ML YEARLY
     Route: 042
     Dates: start: 20090205
  2. ATENOLOL [Concomitant]
     Dosage: 25 MG, QD
  3. BROMOCRYPTINE MESYLATE [Concomitant]
     Dosage: 3 MG, BID
  4. NEXIUM [Concomitant]
     Dosage: 40 MG, QD
  5. DOMPERIDONE [Concomitant]
     Dosage: 10 MG, TID
  6. DICETEL [Concomitant]
     Dosage: 50 MG, TID

REACTIONS (7)
  - ABDOMINAL PAIN UPPER [None]
  - CHILLS [None]
  - HEADACHE [None]
  - INFLUENZA LIKE ILLNESS [None]
  - PYREXIA [None]
  - TACHYCARDIA [None]
  - TREMOR [None]
